FAERS Safety Report 25219276 (Version 1)
Quarter: 2025Q2

REPORT INFORMATION
  Report Type: Report from Study
  Country: CA (occurrence: CA)
  Receive Date: 20250421
  Receipt Date: 20250421
  Transmission Date: 20250716
  Serious: Yes (Other)
  Sender: TAKEDA
  Company Number: CA-TAKEDA-2025TUS036201

PATIENT
  Sex: Female

DRUGS (4)
  1. VEDOLIZUMAB [Suspect]
     Active Substance: VEDOLIZUMAB
     Indication: Colitis ulcerative
  2. SENNA [Suspect]
     Active Substance: SENNOSIDES
     Indication: Constipation
  3. PREDNISONE [Concomitant]
     Active Substance: PREDNISONE
  4. Salofalk [Concomitant]

REACTIONS (6)
  - Haematochezia [Unknown]
  - Feeling abnormal [Unknown]
  - Rectal discharge [Unknown]
  - Abdominal pain [Unknown]
  - Constipation [Unknown]
  - Nausea [Unknown]
